FAERS Safety Report 18039656 (Version 5)
Quarter: 2022Q3

REPORT INFORMATION
  Report Type: Spontaneous
  Country: US (occurrence: US)
  Receive Date: 20200717
  Receipt Date: 20220801
  Transmission Date: 20221026
  Serious: Yes (Hospitalization, Other)
  Sender: FDA-Public Use
  Company Number: US-GILEAD-2020-0483539

PATIENT
  Age: 61 Year
  Sex: Male
  Weight: 72.562 kg

DRUGS (28)
  1. ATRIPLA [Suspect]
     Active Substance: EFAVIRENZ\EMTRICITABINE\TENOFOVIR DISOPROXIL FUMARATE
     Indication: HIV infection
     Dosage: UNK
     Route: 048
     Dates: start: 2006, end: 2011
  2. COMPLERA [Suspect]
     Active Substance: EMTRICITABINE\RILPIVIRINE HYDROCHLORIDE\TENOFOVIR DISOPROXIL FUMARATE
     Indication: HIV infection
     Dosage: UNK
     Route: 048
     Dates: start: 2011, end: 201404
  3. COMPLERA [Suspect]
     Active Substance: EMTRICITABINE\RILPIVIRINE HYDROCHLORIDE\TENOFOVIR DISOPROXIL FUMARATE
     Dosage: UNK
     Route: 065
     Dates: start: 2011, end: 201811
  4. ODEFSEY [Concomitant]
     Active Substance: EMTRICITABINE\RILPIVIRINE HYDROCHLORIDE\TENOFOVIR ALAFENAMIDE FUMARATE
  5. ACETAMINOPHEN [Concomitant]
     Active Substance: ACETAMINOPHEN
  6. ACYCLOVIR [Concomitant]
     Active Substance: ACYCLOVIR
  7. ASPIRIN [Concomitant]
     Active Substance: ASPIRIN
  8. DEXAMETHASONE [Concomitant]
     Active Substance: DEXAMETHASONE
  9. PREDNISONE [Concomitant]
     Active Substance: PREDNISONE
  10. ALBUTEROL [Concomitant]
     Active Substance: ALBUTEROL
  11. COTRIMOXAZOLE [Concomitant]
     Active Substance: SULFAMETHOXAZOLE\TRIMETHOPRIM
  12. DOCUSATE [Concomitant]
     Active Substance: DOCUSATE
  13. LENALIDOMIDE [Concomitant]
     Active Substance: LENALIDOMIDE
  14. ONDANSETRON [Concomitant]
     Active Substance: ONDANSETRON
  15. AZITHROMYCIN [Concomitant]
     Active Substance: AZITHROMYCIN
  16. DRONABINOL [Concomitant]
     Active Substance: DRONABINOL
  17. LORAZEPAM [Concomitant]
     Active Substance: LORAZEPAM
  18. METOCLOPRAMIDE [Concomitant]
     Active Substance: METOCLOPRAMIDE
  19. OXYCODONE [Concomitant]
     Active Substance: OXYCODONE
  20. NALOXONE HCL [Concomitant]
     Active Substance: NALOXONE HYDROCHLORIDE
  21. OLANZAPINE [Concomitant]
     Active Substance: OLANZAPINE
  22. VITAMINS NOS [Concomitant]
     Active Substance: VITAMINS
  23. IRON [Concomitant]
     Active Substance: IRON
  24. LEVOFLOXACIN [Concomitant]
     Active Substance: LEVOFLOXACIN
  25. FLUCONAZOLE [Concomitant]
     Active Substance: FLUCONAZOLE
  26. AMBIEN [Concomitant]
     Active Substance: ZOLPIDEM TARTRATE
  27. HYDROMORPHONE HCL [Concomitant]
     Active Substance: HYDROMORPHONE HYDROCHLORIDE
  28. CELEBREX [Concomitant]
     Active Substance: CELECOXIB

REACTIONS (8)
  - Hip arthroplasty [Not Recovered/Not Resolved]
  - Multiple fractures [Unknown]
  - Osteoporosis [Not Recovered/Not Resolved]
  - Chronic kidney disease [Not Recovered/Not Resolved]
  - Joint debridement [Recovered/Resolved]
  - Aspiration joint [Unknown]
  - Pain [Unknown]
  - Emotional distress [Unknown]

NARRATIVE: CASE EVENT DATE: 20140201
